FAERS Safety Report 7179563-1 (Version None)
Quarter: 2010Q4

REPORT INFORMATION
  Report Type: 
  Country: None (occurrence: None)
  Receive Date: 20101221
  Receipt Date: 20101214
  Transmission Date: 20110411
  Serious: Yes (Other)
  Sender: FDA-Public Use
  Company Number: GR-AMGEN-GRCSP2010007293

PATIENT

DRUGS (4)
  1. MIMPARA [Suspect]
     Indication: HYPERPARATHYROIDISM SECONDARY
     Dosage: 90 MG, QD
     Route: 048
     Dates: start: 20100601, end: 20101101
  2. MIMPARA [Suspect]
     Dosage: UNK
     Dates: start: 20101101
  3. FOSAMAX [Concomitant]
  4. MODURETIC 5-50 [Concomitant]

REACTIONS (2)
  - LYMPHANGITIS [None]
  - LYMPHOEDEMA [None]
